FAERS Safety Report 4503756-2 (Version None)
Quarter: 2004Q3

REPORT INFORMATION
  Report Type: 
  Country: None (occurrence: None)
  Receive Date: 20040928
  Receipt Date: 20040614
  Transmission Date: 20050211
  Serious: No
  Sender: FDA-Public Use
  Company Number: 04P-163-0263733-00

PATIENT
  Age: 41 Year
  Sex: Female
  Weight: 97.0698 kg

DRUGS (5)
  1. HUMIRA [Suspect]
     Indication: RHEUMATOID ARTHRITIS
     Dosage: 40 MG, 1 IN 1 WK, SUBCUTANEOUS; 40 MG, 1 IN 2 WK, SUBCUTANEOUS;  40 MG, 1 IN 1 WK, SUBCUTANEOUS
     Route: 058
     Dates: start: 20040323, end: 20040406
  2. HUMIRA [Suspect]
     Indication: RHEUMATOID ARTHRITIS
     Dosage: 40 MG, 1 IN 1 WK, SUBCUTANEOUS; 40 MG, 1 IN 2 WK, SUBCUTANEOUS;  40 MG, 1 IN 1 WK, SUBCUTANEOUS
     Route: 058
     Dates: start: 20040407, end: 20040609
  3. HUMIRA [Suspect]
     Indication: RHEUMATOID ARTHRITIS
     Dosage: 40 MG, 1 IN 1 WK, SUBCUTANEOUS; 40 MG, 1 IN 2 WK, SUBCUTANEOUS;  40 MG, 1 IN 1 WK, SUBCUTANEOUS
     Route: 058
     Dates: start: 20040610
  4. GLUCOPHAGE [Concomitant]
  5. LEVOTHYROXINE SODIUM [Concomitant]

REACTIONS (6)
  - DIZZINESS [None]
  - INFLUENZA LIKE ILLNESS [None]
  - MUSCULAR WEAKNESS [None]
  - RHEUMATOID ARTHRITIS [None]
  - TREMOR [None]
  - VOMITING [None]
